FAERS Safety Report 21274290 (Version 3)
Quarter: 2023Q1

REPORT INFORMATION
  Report Type: Report from Study
  Country: CO (occurrence: CO)
  Receive Date: 20220831
  Receipt Date: 20230304
  Transmission Date: 20230418
  Serious: Yes (Hospitalization, Other)
  Sender: FDA-Public Use
  Company Number: CO-ABBVIE-22K-036-4520862-00

PATIENT
  Sex: Female
  Weight: 74 kg

DRUGS (3)
  1. HUMIRA [Suspect]
     Active Substance: ADALIMUMAB
     Indication: Juvenile idiopathic arthritis
     Route: 058
  2. HUMIRA [Suspect]
     Active Substance: ADALIMUMAB
  3. COVID-19 VACCINE [Concomitant]
     Indication: COVID-19 immunisation
     Dosage: TIME INTERVAL: 1 TOTAL: SECOND DOSE
     Route: 030

REACTIONS (27)
  - Vasculitis [Recovered/Resolved]
  - Loss of consciousness [Recovered/Resolved]
  - Visual impairment [Recovering/Resolving]
  - Nerve injury [Recovered/Resolved]
  - Skin laceration [Recovered/Resolved]
  - Hypotension [Not Recovered/Not Resolved]
  - Psychiatric symptom [Recovering/Resolving]
  - Vasculitis [Recovered/Resolved]
  - Pain in extremity [Recovering/Resolving]
  - Fall [Recovered/Resolved]
  - Pancreatic disorder [Unknown]
  - Eating disorder [Recovering/Resolving]
  - Helicobacter test positive [Recovering/Resolving]
  - Vomiting [Recovering/Resolving]
  - Liver disorder [Unknown]
  - Feeling cold [Not Recovered/Not Resolved]
  - Fatigue [Recovering/Resolving]
  - Migraine [Recovered/Resolved]
  - Migraine [Recovering/Resolving]
  - Anger [Unknown]
  - Stress [Recovering/Resolving]
  - Pain [Recovering/Resolving]
  - Abdominal pain [Recovering/Resolving]
  - Abdominal pain upper [Recovering/Resolving]
  - Influenza [Recovered/Resolved]
  - Discomfort [Unknown]
  - Nasopharyngitis [Recovered/Resolved]

NARRATIVE: CASE EVENT DATE: 20160101
